FAERS Safety Report 6565082-X (Version None)
Quarter: 2010Q1

REPORT INFORMATION
  Report Type: 
  Country: None (occurrence: None)
  Receive Date: 20100201
  Receipt Date: 20100126
  Transmission Date: 20100710
  Serious: Yes (Hospitalization)
  Sender: FDA-Public Use
  Company Number: US-MERCK-1001USA03412

PATIENT
  Age: 85 Year
  Sex: Female

DRUGS (2)
  1. COSOPT [Suspect]
     Indication: GLAUCOMA
     Route: 047
     Dates: start: 19980101, end: 20100101
  2. COMBIGAN [Suspect]
     Route: 065

REACTIONS (2)
  - EYE DISORDER [None]
  - EYE PAIN [None]
